FAERS Safety Report 10241182 (Version 1)
Quarter: 2014Q2

REPORT INFORMATION
  Report Type: Spontaneous
  Country: MX (occurrence: MX)
  Receive Date: 20140617
  Receipt Date: 20140617
  Transmission Date: 20141212
  Serious: Yes (Hospitalization)
  Sender: FDA-Public Use
  Company Number: MX-B.I. PHARMACEUTICALS,INC./RIDGEFIELD-2014-BI-26284MX

PATIENT
  Age: 61 Year
  Sex: Male

DRUGS (5)
  1. GIOTRIF [Suspect]
     Indication: LUNG NEOPLASM MALIGNANT
     Dosage: 40 MG
     Route: 065
     Dates: start: 20140520, end: 20140603
  2. IMODIUM [Concomitant]
     Indication: DIARRHOEA
     Route: 048
  3. STEROIDS [Concomitant]
     Route: 065
  4. BRONCHODILATORS [Concomitant]
     Indication: PNEUMONIA
     Route: 065
  5. GLIBENCLAMIDE [Concomitant]
     Route: 065

REACTIONS (1)
  - Clostridium bacteraemia [Not Recovered/Not Resolved]
